FAERS Safety Report 16159398 (Version 1)
Quarter: 2019Q2

REPORT INFORMATION
  Report Type: Spontaneous
  Country: US (occurrence: US)
  Receive Date: 20190404
  Receipt Date: 20190404
  Transmission Date: 20190711
  Serious: Yes (Death, Hospitalization, Other)
  Sender: FDA-Public Use
  Company Number: US-BRISTOL-MYERS SQUIBB COMPANY-BMS-2019-032705

PATIENT
  Age: 63 Year
  Sex: Female

DRUGS (1)
  1. ELIQUIS [Suspect]
     Active Substance: APIXABAN
     Indication: THROMBOSIS PROPHYLAXIS
     Dosage: 2.5 MILLIGRAM, BID
     Route: 048
     Dates: start: 20190123, end: 20190309

REACTIONS (13)
  - Renal disorder [Recovered/Resolved]
  - International normalised ratio increased [Unknown]
  - Fibrinolysis [Unknown]
  - Prothrombin time prolonged [Unknown]
  - Intentional product misuse [Unknown]
  - Treatment noncompliance [Unknown]
  - Urinary tract infection [Recovered/Resolved]
  - Fibrin D dimer increased [Unknown]
  - Haematuria [Unknown]
  - Drug level increased [Unknown]
  - Hepatic failure [Unknown]
  - Platelet count decreased [Unknown]
  - Activated partial thromboplastin time prolonged [Unknown]

NARRATIVE: CASE EVENT DATE: 20190306
